FAERS Safety Report 13406862 (Version 1)
Quarter: 2017Q2

REPORT INFORMATION
  Report Type: Spontaneous
  Country: US (occurrence: US)
  Receive Date: 20170405
  Receipt Date: 20170405
  Transmission Date: 20170830
  Serious: No
  Sender: FDA-Public Use
  Company Number: US-EAGLE PHARMACEUTICALS, INC.-US-2016EAG000738

PATIENT
  Sex: Male

DRUGS (1)
  1. BENDEKA [Suspect]
     Active Substance: BENDAMUSTINE HYDROCHLORIDE
     Indication: CHRONIC LYMPHOCYTIC LEUKAEMIA
     Dosage: UNKNOWN DOSAGE AND DILUENT

REACTIONS (1)
  - Drug ineffective [Unknown]
